FAERS Safety Report 4767103-3 (Version None)
Quarter: 2005Q3

REPORT INFORMATION
  Report Type: 
  Country: None (occurrence: None)
  Receive Date: 20050913
  Receipt Date: 20050805
  Transmission Date: 20060218
  Serious: Yes (Other)
  Sender: FDA-Public Use
  Company Number: 2005UW11563

PATIENT
  Age: 50 Year
  Sex: Female
  Weight: 81.8 kg

DRUGS (18)
  1. SEROQUEL [Suspect]
     Route: 048
  2. BUPROPION [Suspect]
     Indication: DEPRESSION
     Route: 048
     Dates: start: 20050530, end: 20050704
  3. BUPROPION [Suspect]
     Indication: BIPOLAR DISORDER
     Route: 048
     Dates: start: 20050530, end: 20050704
  4. LAMICTAL [Suspect]
     Route: 048
  5. EFFEXOR [Suspect]
  6. CYMBALTA [Suspect]
  7. LITHIUM CARBONATE [Concomitant]
  8. ACTOS [Concomitant]
  9. GLIPIZIDE [Concomitant]
  10. SYNTHROID [Concomitant]
  11. AVAPRO [Concomitant]
  12. CLONAZEPAM [Concomitant]
  13. AMBIEN [Concomitant]
  14. INDERAL [Concomitant]
     Route: 065
  15. PROZAC [Concomitant]
  16. CLIMARA [Concomitant]
  17. CHOLESTYRAMINE [Concomitant]
  18. ELAVIL [Concomitant]
     Route: 048

REACTIONS (4)
  - AGITATION [None]
  - ANXIETY [None]
  - DEPRESSION [None]
  - SUICIDAL IDEATION [None]
